FAERS Safety Report 23798360 (Version 1)
Quarter: 2024Q2

REPORT INFORMATION
  Report Type: Spontaneous
  Country: US (occurrence: US)
  Receive Date: 20240430
  Receipt Date: 20240430
  Transmission Date: 20240715
  Serious: No
  Sender: FDA-Public Use
  Company Number: US-PFIZER INC-202400095671

PATIENT
  Age: 16 Year
  Sex: Male
  Weight: 78.6 kg

DRUGS (9)
  1. GENOTROPIN [Suspect]
     Active Substance: SOMATROPIN
     Indication: Growth hormone deficiency
     Dosage: 2.8 MG NIGHTLY SUBCUTANEOUS
     Route: 058
     Dates: start: 20231212
  2. TYLENOL [Concomitant]
     Active Substance: ACETAMINOPHEN
     Indication: Pain
     Dosage: 325MG TABLETS EVERY SIX HOURS BY MOUTH AS NEEDED
     Route: 048
  3. BUSPAR [Concomitant]
     Active Substance: BUSPIRONE HYDROCHLORIDE
     Indication: Anxiety
     Dosage: 30MG TABLET TWO TIMES DAILY BY MOUTH
     Route: 048
  4. CLONIDINE [Concomitant]
     Active Substance: CLONIDINE
     Indication: Anxiety
     Dosage: 0.1MG TABLET AS NEEDED
  5. CLONIDINE [Concomitant]
     Active Substance: CLONIDINE
     Indication: Agitation
  6. BENADRYL [Concomitant]
     Active Substance: DIPHENHYDRAMINE HYDROCHLORIDE
     Indication: Agitation
     Dosage: 25MG CAPSULE AS NEEDED
  7. VYVANSE [Concomitant]
     Active Substance: LISDEXAMFETAMINE DIMESYLATE
     Indication: Attention deficit hyperactivity disorder
     Dosage: 60MG CAPSULE ONCE DAILY
  8. MELATONIN [Concomitant]
     Active Substance: MELATONIN
     Indication: Sleep disorder
     Dosage: 6MG TABLET NIGHTLY
  9. METFORMIN [Concomitant]
     Active Substance: METFORMIN HYDROCHLORIDE
     Indication: Diabetes mellitus
     Dosage: 500MG TABLET DAILY WITH DINNER

REACTIONS (2)
  - Poor quality product administered [Unknown]
  - Device physical property issue [Unknown]
